FAERS Safety Report 6322101-3 (Version None)
Quarter: 2009Q3

REPORT INFORMATION
  Report Type: 
  Country: None (occurrence: None)
  Receive Date: 20090821
  Receipt Date: 20090821
  Transmission Date: 20100115
  Serious: Yes (Hospitalization, Disabling)
  Sender: FDA-Public Use
  Company Number: None

PATIENT
  Age: 55 Year
  Sex: Female
  Weight: 61 kg

DRUGS (3)
  1. BEVACIZUMAB 10MG/KG GENENTECH [Suspect]
     Indication: PANCREATIC CARCINOMA METASTATIC
     Dosage: 640MG Q2WKS IV
     Route: 042
     Dates: start: 20080918, end: 20090813
  2. GEMCITABINE [Concomitant]
  3. DOCETAXEL [Concomitant]

REACTIONS (1)
  - PLEURAL EFFUSION [None]
